FAERS Safety Report 7913990-7 (Version None)
Quarter: 2011Q4

REPORT INFORMATION
  Report Type: 
  Country: None (occurrence: None)
  Receive Date: 20111115
  Receipt Date: 20111107
  Transmission Date: 20120403
  Serious: Yes (Hospitalization)
  Sender: FDA-Public Use
  Company Number: FR-B.I. PHARMACEUTICALS,INC./RIDGEFIELD-2006-FF-00570FF

PATIENT
  Age: 55 Year
  Sex: Male

DRUGS (4)
  1. SINEMET [Concomitant]
     Indication: PARKINSON'S DISEASE
     Dosage: 25 MG/ 100 MG DAILY
     Route: 048
     Dates: start: 19960615
  2. PRAMIPEXOLE DIHYDROCHLORIDE [Suspect]
     Indication: PARKINSON'S DISEASE
     Dosage: 2.1 MG
     Route: 048
     Dates: start: 20060401, end: 20060411
  3. STALEVO 100 [Concomitant]
     Indication: PARKINSON'S DISEASE
     Route: 048
     Dates: start: 20060408
  4. PERGOLIDE MESYLATE [Concomitant]
     Indication: PARKINSON'S DISEASE
     Route: 048
     Dates: start: 19960615

REACTIONS (4)
  - AGGRESSION [None]
  - DRUG DEPENDENCE [None]
  - LIBIDO INCREASED [None]
  - AGITATION [None]
